FAERS Safety Report 5199621-0 (Version None)
Quarter: 2007Q1

REPORT INFORMATION
  Report Type: 
  Country: None (occurrence: None)
  Receive Date: 20070103
  Receipt Date: 20070103
  Transmission Date: 20070707
  Serious: Yes (Hospitalization)
  Sender: FDA-Public Use
  Company Number: None

PATIENT
  Sex: Female
  Weight: 51.5 kg

DRUGS (19)
  1. CETUXIMAB, 250 MG/M2, BRISTOL MYERS SQUIBB [Suspect]
     Indication: CERVIX CARCINOMA
     Dosage: 360 MG WEEKLY IV
     Route: 042
     Dates: start: 20061005
  2. CETUXIMAB, 250 MG/M2, BRISTOL MYERS SQUIBB [Suspect]
     Indication: CERVIX CARCINOMA
     Dosage: 360 MG WEEKLY IV
     Route: 042
     Dates: start: 20061012
  3. CETUXIMAB 250 MG/M2 BRISTOL MEYERS SQUIBB [Suspect]
     Indication: CERVIX CARCINOMA
     Dosage: 360 MG WEEKLY IV
     Route: 042
     Dates: start: 20061019
  4. CETUXIMAB 250 MG/M2 BRISTOL MEYERS SQUIBB [Suspect]
     Indication: CERVIX CARCINOMA
     Dosage: 360 MG WEEKLY IV
     Route: 042
     Dates: start: 20061026
  5. CETUXIMAB 250 MG/M2 BRISTOL MEYERS SQUIBB [Suspect]
     Indication: CERVIX CARCINOMA
     Dosage: 360 MG WEEKLY IV
     Route: 042
     Dates: start: 20061102
  6. CETUXIMAB 250 MG/M2 BRISTOL MEYERS SQUIBB [Suspect]
     Indication: CERVIX CARCINOMA
     Dosage: 360 MG WEEKLY IV
     Route: 042
     Dates: start: 20061109
  7. CETUXIMAB 250 MG/M2 BRISTOL MEYERS SQUIBB [Suspect]
     Indication: CERVIX CARCINOMA
     Dosage: 360 MG WEEKLY IV
     Route: 042
     Dates: start: 20061207
  8. FAMOTIDINE [Concomitant]
  9. SENNA-S [Concomitant]
  10. VITAMIN B6 [Concomitant]
  11. OXYCODONE HCL [Concomitant]
  12. IBUPROFEN [Concomitant]
  13. CLINDAMYCIN [Concomitant]
  14. ALUMINUM W/ MAGNESIUM HYDROXIDE/NYSTATIN/DIPHENHYDRAMINE [Concomitant]
  15. LIDOCAINE + PRILOCAINE [Concomitant]
  16. LOPERAMIDE HCL [Concomitant]
  17. PETROLATUM OINTMENT W/MINERAL OIL, CERESIN, LANOLIN ALCOHOL, PANTHENOL [Concomitant]
  18. OPIUM TINCTURE [Concomitant]
  19. .. [Concomitant]

REACTIONS (4)
  - BRADYCARDIA [None]
  - CHEST PAIN [None]
  - SINUS ARRHYTHMIA [None]
  - SINUS BRADYCARDIA [None]
